FAERS Safety Report 24804240 (Version 1)
Quarter: 2025Q1

REPORT INFORMATION
  Report Type: Spontaneous
  Country: US (occurrence: None)
  Receive Date: 20250102
  Receipt Date: 20250102
  Transmission Date: 20250408
  Serious: No
  Sender: FDA-CTU
  Company Number: None

PATIENT
  Age: 79 Year
  Sex: Male
  Weight: 82.78 kg

DRUGS (3)
  1. DARATUMUMAB\HYALURONIDASE-FIHJ [Suspect]
     Active Substance: DARATUMUMAB\HYALURONIDASE-FIHJ
     Dates: start: 20240919, end: 20241226
  2. DEXAMETHASONE [Suspect]
     Active Substance: DEXAMETHASONE
     Dates: start: 20240919, end: 20250102
  3. LENALIDOMIDE [Suspect]
     Active Substance: LENALIDOMIDE
     Dates: start: 20240919, end: 20250101

REACTIONS (5)
  - Upper respiratory tract infection [None]
  - Febrile neutropenia [None]
  - Respiratory syncytial virus infection [None]
  - Bronchitis [None]
  - Bronchiolitis [None]

NARRATIVE: CASE EVENT DATE: 20250101
